FAERS Safety Report 8577272-5 (Version None)
Quarter: 2012Q3

REPORT INFORMATION
  Report Type: 
  Country: None (occurrence: None)
  Receive Date: 20120807
  Receipt Date: 20120727
  Transmission Date: 20120928
  Serious: No
  Sender: FDA-Public Use
  Company Number: US-ASTRAZENECA-2012SE53710

PATIENT
  Age: 72 Year
  Sex: Female

DRUGS (1)
  1. ARIMIDEX [Suspect]
     Route: 048

REACTIONS (7)
  - HOT FLUSH [None]
  - PARAESTHESIA [None]
  - ALOPECIA [None]
  - FATIGUE [None]
  - ASTHENIA [None]
  - INSOMNIA [None]
  - MYALGIA [None]
